FAERS Safety Report 19700941 (Version 4)
Quarter: 2021Q3

REPORT INFORMATION
  Report Type: Report from Study
  Country: MX (occurrence: MX)
  Receive Date: 20210813
  Receipt Date: 20210906
  Transmission Date: 20211014
  Serious: Yes (Other)
  Sender: FDA-Public Use
  Company Number: NVSC2021MX178069

PATIENT
  Age: 62 Year
  Sex: Male
  Weight: 78 kg

DRUGS (3)
  1. GALVUS MET [Suspect]
     Active Substance: METFORMIN HYDROCHLORIDE\VILDAGLIPTIN
     Indication: DIABETES MELLITUS
     Dosage: 1 DF, BID
     Route: 048
     Dates: start: 201808, end: 20210731
  2. GALVUS MET [Suspect]
     Active Substance: METFORMIN HYDROCHLORIDE\VILDAGLIPTIN
     Dosage: 1 DF, BID
     Route: 048
  3. GALVUS MET [Suspect]
     Active Substance: METFORMIN HYDROCHLORIDE\VILDAGLIPTIN
     Dosage: 50/500MG, BID
     Route: 048

REACTIONS (11)
  - Retinopathy hypertensive [Unknown]
  - Pollakiuria [Unknown]
  - Foot deformity [Unknown]
  - Peripheral swelling [Unknown]
  - Visual impairment [Unknown]
  - Anxiety [Unknown]
  - Discomfort [Unknown]
  - Gait disturbance [Not Recovered/Not Resolved]
  - Exostosis [Unknown]
  - Feeling abnormal [Not Recovered/Not Resolved]
  - Fatigue [Unknown]

NARRATIVE: CASE EVENT DATE: 201806
